FAERS Safety Report 11279269 (Version 3)
Quarter: 2015Q3

REPORT INFORMATION
  Report Type: Spontaneous
  Country: US (occurrence: US)
  Receive Date: 20150717
  Receipt Date: 20150923
  Transmission Date: 20151125
  Serious: No
  Sender: FDA-Public Use
  Company Number: US-PFIZER INC-2014213178

PATIENT
  Age: 65 Year
  Sex: Female
  Weight: 97.51 kg

DRUGS (3)
  1. LYRICA [Suspect]
     Active Substance: PREGABALIN
     Indication: NERVE INJURY
     Dosage: 75 MG, (ONE TO THREE TIMES A DAY)
     Route: 048
  2. LYRICA [Suspect]
     Active Substance: PREGABALIN
     Indication: NEURALGIA
     Dosage: 75 MG, 3X/DAY
     Dates: start: 2010
  3. ESTRACE [Concomitant]
     Active Substance: ESTRADIOL
     Indication: CYSTITIS
     Dosage: UNK, TWO TO THREE TIMES IN A WEEK
     Dates: start: 2010

REACTIONS (2)
  - Sinusitis [Recovered/Resolved]
  - Increased upper airway secretion [Recovered/Resolved]

NARRATIVE: CASE EVENT DATE: 2015
